FAERS Safety Report 21860747 (Version 1)
Quarter: 2023Q1

REPORT INFORMATION
  Report Type: Spontaneous
  Country: US (occurrence: US)
  Receive Date: 20230113
  Receipt Date: 20230113
  Transmission Date: 20230417
  Serious: No
  Sender: FDA-Public Use
  Company Number: US-NOVOPROD-980693

PATIENT
  Sex: Female

DRUGS (3)
  1. WEGOVY [Suspect]
     Active Substance: SEMAGLUTIDE
     Indication: Weight control
     Dosage: 0.25 MG
     Dates: start: 202104
  2. WEGOVY [Suspect]
     Active Substance: SEMAGLUTIDE
     Dosage: 0.25 MG (DOSE DECREASED)
  3. WEGOVY [Suspect]
     Active Substance: SEMAGLUTIDE
     Dosage: 0.50 MG

REACTIONS (3)
  - Anxiety [Unknown]
  - Weight increased [Unknown]
  - Adverse drug reaction [Unknown]
